FAERS Safety Report 6349794-9 (Version None)
Quarter: 2009Q3

REPORT INFORMATION
  Report Type: 
  Country: None (occurrence: None)
  Receive Date: 20090911
  Receipt Date: 20090904
  Transmission Date: 20100115
  Serious: Yes (Hospitalization)
  Sender: FDA-Public Use
  Company Number: US-GENENTECH-290006

PATIENT
  Sex: Male
  Weight: 91.7 kg

DRUGS (13)
  1. RITUXIMAB [Suspect]
     Indication: HAIRY CELL LEUKAEMIA
     Dosage: 806 MG, UNK
     Route: 042
     Dates: start: 20090827
  2. RITUXIMAB [Suspect]
     Dosage: 806 MG, UNK
     Route: 042
     Dates: start: 20090903
  3. CLADRIBINE [Suspect]
     Indication: HAIRY CELL LEUKAEMIA
     Dosage: 13.6 MG, UNK
     Route: 042
     Dates: start: 20090827, end: 20090831
  4. MERBROMIN [Concomitant]
     Indication: DRUG USE FOR UNKNOWN INDICATION
     Dosage: UNK
     Dates: start: 20090827
  5. TYLENOL (CAPLET) [Concomitant]
     Indication: DRUG USE FOR UNKNOWN INDICATION
  6. DEXAMETHASONE [Concomitant]
     Indication: DRUG USE FOR UNKNOWN INDICATION
     Dosage: UNK
     Dates: start: 20090828
  7. DEXAMETHASONE [Concomitant]
     Dosage: UNK
     Dates: start: 20090903
  8. DIPHEDRYL [Concomitant]
     Indication: DRUG USE FOR UNKNOWN INDICATION
     Dosage: UNK
     Dates: start: 20090828
  9. DIPHEDRYL [Concomitant]
     Dosage: UNK
     Dates: start: 20090903
  10. CEFTAZIDIME [Concomitant]
     Indication: DRUG USE FOR UNKNOWN INDICATION
  11. BACTRIM [Concomitant]
     Indication: DRUG USE FOR UNKNOWN INDICATION
     Dosage: UNK
     Dates: start: 20090827
  12. CIPROFLOXACIN HCL [Concomitant]
     Indication: DRUG USE FOR UNKNOWN INDICATION
     Dosage: UNK
     Dates: start: 20090901
  13. AUGMENTIN '125' [Concomitant]
     Indication: DRUG USE FOR UNKNOWN INDICATION

REACTIONS (1)
  - FEBRILE NEUTROPENIA [None]
